FAERS Safety Report 25360548 (Version 1)
Quarter: 2025Q2

REPORT INFORMATION
  Report Type: Spontaneous
  Country: US (occurrence: US)
  Receive Date: 20250527
  Receipt Date: 20250527
  Transmission Date: 20250716
  Serious: Yes (Other)
  Sender: NOVO NORDISK
  Company Number: US-NOVOPROD-1436454

PATIENT
  Age: 65 Year
  Sex: Female

DRUGS (1)
  1. OZEMPIC [Suspect]
     Active Substance: SEMAGLUTIDE
     Indication: Type 2 diabetes mellitus
     Dosage: 1 MG, QW
     Route: 058
     Dates: start: 202304

REACTIONS (6)
  - Eye operation [Unknown]
  - Retinopathy [Unknown]
  - Stent placement [Unknown]
  - Eye pain [Unknown]
  - Eyelid oedema [Unknown]
  - Eyelid pain [Unknown]

NARRATIVE: CASE EVENT DATE: 20240401
